FAERS Safety Report 6996724-2 (Version None)
Quarter: 2010Q3

REPORT INFORMATION
  Report Type: 
  Country: None (occurrence: None)
  Receive Date: 20100918
  Receipt Date: 20090625
  Transmission Date: 20110219
  Serious: No
  Sender: FDA-Public Use
  Company Number: US-WYE-H09922509

PATIENT
  Sex: Female
  Weight: 63.56 kg

DRUGS (10)
  1. PREMPRO [Suspect]
     Indication: HORMONE REPLACEMENT THERAPY
     Dosage: 0.625/2.5, UNSPECIFIED FREQUENCY
     Route: 048
     Dates: start: 19800101
  2. METOPROLOL [Concomitant]
  3. PRILOSEC [Concomitant]
  4. TRAMADOL [Concomitant]
  5. SIMVASTATIN [Concomitant]
  6. MIACALCIN [Concomitant]
  7. ASTELIN [Concomitant]
  8. CELEBREX [Concomitant]
  9. SYNTHROID [Concomitant]
  10. ASPIRIN [Concomitant]

REACTIONS (3)
  - ENDOMETRIAL HYPERTROPHY [None]
  - HYPOMENORRHOEA [None]
  - METRORRHAGIA [None]
